FAERS Safety Report 8967712 (Version 1)
Quarter: 2012Q4

REPORT INFORMATION
  Report Type: Spontaneous
  Country: FR (occurrence: None)
  Receive Date: 20121207
  Receipt Date: 20121207
  Transmission Date: 20130627
  Serious: Yes (Hospitalization)
  Sender: FDA-Public Use
  Company Number: VAL_01026_2012

PATIENT
  Age: 37 Year
  Sex: Female

DRUGS (2)
  1. PARLODEL [Suspect]
     Dosage: (2 DF,  [daily] )
(08/05/1999   to  08/21/1999)
     Dates: start: 19990805, end: 19990821
  2. ACETAMINOPHEN\PHENYLPROPANOLAMINE\PHENYLTOLOXAMINE [Suspect]
     Dosage: (2 DF)
(Unknown)

REACTIONS (4)
  - Blood pressure increased [None]
  - Headache [None]
  - Cerebral haemorrhage [None]
  - Meningorrhagia [None]
